FAERS Safety Report 4827722-2 (Version None)
Quarter: 2005Q4

REPORT INFORMATION
  Report Type: 
  Country: None (occurrence: None)
  Receive Date: 20051114
  Receipt Date: 20050930
  Transmission Date: 20060501
  Serious: Yes (Hospitalization, Other)
  Sender: FDA-Public Use
  Company Number: US-MERCK-0510USA00718

PATIENT
  Age: 79 Year
  Sex: Female
  Weight: 77 kg

DRUGS (13)
  1. VIOXX [Suspect]
     Indication: BACK PAIN
     Route: 048
     Dates: start: 20000323, end: 20030914
  2. VIOXX [Suspect]
     Route: 048
     Dates: start: 20000323, end: 20030914
  3. ACIPHEX [Concomitant]
     Route: 065
  4. ADALAT [Concomitant]
     Route: 065
  5. ATENOLOL MSD [Concomitant]
     Route: 065
  6. DITROPAN [Concomitant]
     Route: 065
  7. FOLIC ACID [Concomitant]
     Route: 065
  8. PANCREASE (PANCREATIN) [Concomitant]
     Route: 065
  9. PREMARIN [Concomitant]
     Route: 065
  10. THYROID TABLETS USP [Concomitant]
     Route: 065
  11. TRICOR [Concomitant]
     Route: 065
  12. ZETIA [Concomitant]
     Route: 065
  13. ZOLOFT [Concomitant]
     Route: 065

REACTIONS (1)
  - CEREBROVASCULAR ACCIDENT [None]
